FAERS Safety Report 18223316 (Version 1)
Quarter: 2020Q3

REPORT INFORMATION
  Report Type: Spontaneous
  Country: FR (occurrence: FR)
  Receive Date: 20200902
  Receipt Date: 20200902
  Transmission Date: 20201103
  Serious: Yes (Hospitalization)
  Sender: FDA-Public Use
  Company Number: FR-TEVA-2020-FR-1821998

PATIENT
  Age: 75 Year
  Sex: Male
  Weight: 72 kg

DRUGS (1)
  1. LANSOPRAZOLE. [Suspect]
     Active Substance: LANSOPRAZOLE
     Indication: PEPTIC ULCER
     Dosage: SEE COMMENTS
     Route: 048
     Dates: start: 20190924, end: 20200702

REACTIONS (2)
  - Diarrhoea [Recovered/Resolved]
  - Colitis microscopic [Recovering/Resolving]

NARRATIVE: CASE EVENT DATE: 20200510
